FAERS Safety Report 6145688-2 (Version None)
Quarter: 2009Q2

REPORT INFORMATION
  Report Type: 
  Country: None (occurrence: None)
  Receive Date: 20090407
  Receipt Date: 20090326
  Transmission Date: 20091009
  Serious: Yes (Death, Other)
  Sender: FDA-Public Use
  Company Number: ZA-JNJFOC-20090307215

PATIENT
  Sex: Male
  Weight: 90 kg

DRUGS (3)
  1. REVELLEX [Suspect]
     Indication: RHEUMATOID ARTHRITIS
     Route: 042
  2. METHOTREXATE SODIUM [Concomitant]
     Route: 048
  3. PREDNISONE [Concomitant]
     Route: 048

REACTIONS (4)
  - CARDIAC DISORDER [None]
  - LUNG DISORDER [None]
  - LUNG INFECTION [None]
  - ROAD TRAFFIC ACCIDENT [None]
